FAERS Safety Report 13043626 (Version 1)
Quarter: 2016Q4

REPORT INFORMATION
  Report Type: Spontaneous
  Country: US (occurrence: US)
  Receive Date: 20161219
  Receipt Date: 20161219
  Transmission Date: 20170207
  Serious: Yes (Hospitalization)
  Sender: FDA-Public Use
  Company Number: None

PATIENT
  Age: 50 Year
  Sex: Male
  Weight: 99.8 kg

DRUGS (15)
  1. SOFOSBUVIR/VELPATASVIR [Suspect]
     Active Substance: SOFOSBUVIR\VELPATASVIR
     Route: 048
     Dates: start: 20160928
  2. CARVEDILOL (COREG) [Concomitant]
  3. ISOSORBIDE DINITRATE (ISORDIL) [Concomitant]
  4. LEVOTHYROXINE (SYNTHROID, LEVOTHROID) [Concomitant]
  5. POTASSIUM CHLORIDE. [Concomitant]
     Active Substance: POTASSIUM CHLORIDE
  6. ISOSORBIDE DINITRATE (ISORDIL) [Concomitant]
  7. XANAX [Concomitant]
     Active Substance: ALPRAZOLAM
  8. FEBUXOSTAT (ULORIC) [Concomitant]
  9. FOLIC ACID (FOLVITE) [Concomitant]
  10. HYDROXYUREA (HYDREA) [Concomitant]
  11. HYDROXYUREA (HYDREA) [Concomitant]
  12. LANOXIN [Concomitant]
     Active Substance: DIGOXIN
  13. HYDRALAZINE (APRESOLINE) [Concomitant]
  14. TORSEMIDE (DEMADEX) [Concomitant]
  15. ALBUTEROL (PROVENTIL HFA) [Concomitant]

REACTIONS (15)
  - Polycythaemia vera [None]
  - Congestive cardiomyopathy [None]
  - Thrombocytopenia [None]
  - Hepatic cirrhosis [None]
  - Contusion [None]
  - Dyspnoea [None]
  - Exercise tolerance decreased [None]
  - Chest discomfort [None]
  - Chest pain [None]
  - International normalised ratio increased [None]
  - Haematoma [None]
  - Cardiac flutter [None]
  - Hepatitis [None]
  - Coagulopathy [None]
  - Viral upper respiratory tract infection [None]

NARRATIVE: CASE EVENT DATE: 20161212
